FAERS Safety Report 21043371 (Version 5)
Quarter: 2022Q4

REPORT INFORMATION
  Report Type: Spontaneous
  Country: US (occurrence: US)
  Receive Date: 20220705
  Receipt Date: 20221017
  Transmission Date: 20230113
  Serious: Yes (Hospitalization, Other)
  Sender: FDA-Public Use
  Company Number: US-PFIZER INC-202200917548

PATIENT
  Age: 61 Year
  Sex: Female

DRUGS (5)
  1. IBRANCE [Suspect]
     Active Substance: PALBOCICLIB
     Dosage: 125 MG, CYCLIC (TAKE 1 TABLET ONCE DAILY FOR 21 DAYS THEN 7 DAYS OFF)
     Dates: start: 20220511
  2. IBRANCE [Suspect]
     Active Substance: PALBOCICLIB
     Dosage: 125 MG, CYCLIC (TAKE 1 TABLET ONCE DAILY FOR 21 DAYS THEN 7 DAYS OFF)
     Dates: start: 20220521
  3. FASLODEX [Concomitant]
     Active Substance: FULVESTRANT
     Dosage: UNK
  4. ACETAMINOPHEN\HYDROCODONE [Concomitant]
     Active Substance: ACETAMINOPHEN\HYDROCODONE
     Dosage: UNK
  5. NAPROXEN [Concomitant]
     Active Substance: NAPROXEN
     Dosage: UNK

REACTIONS (9)
  - Gallbladder disorder [Unknown]
  - Urinary tract infection [Unknown]
  - Sepsis [Unknown]
  - Pleural effusion [Unknown]
  - Lymphoedema [Unknown]
  - Bone pain [Unknown]
  - Peripheral swelling [Recovered/Resolved]
  - Lung disorder [Unknown]
  - Infection [Unknown]

NARRATIVE: CASE EVENT DATE: 20220101
